FAERS Safety Report 7443109-0 (Version None)
Quarter: 2011Q2

REPORT INFORMATION
  Report Type: 
  Country: None (occurrence: None)
  Receive Date: 20110428
  Receipt Date: 20110426
  Transmission Date: 20111010
  Serious: Yes (Hospitalization, Other)
  Sender: FDA-Public Use
  Company Number: CA-ABBOTT-10P-028-0686839-00

PATIENT
  Sex: Male
  Weight: 104.42 kg

DRUGS (14)
  1. ALLOPURINOL [Concomitant]
     Indication: GOUT
     Route: 048
  2. CADUET [Concomitant]
     Indication: BLOOD CHOLESTEROL INCREASED
  3. TIMOLOL [Concomitant]
     Indication: GLAUCOMA
     Route: 047
     Dates: start: 20060101
  4. HUMIRA [Suspect]
     Indication: RHEUMATOID ARTHRITIS
     Route: 058
  5. ALTACE HYDROCHLOROTHIAZIDE [Concomitant]
     Indication: HYPERTENSION
     Dosage: 10MG + 12.5 MG
     Route: 048
  6. GLICLAZIDE [Concomitant]
     Indication: PRODUCT USED FOR UNKNOWN INDICATION
     Route: 048
  7. FUROSEMIDE [Concomitant]
     Indication: DIURETIC THERAPY
     Route: 048
  8. CADUET [Concomitant]
     Indication: HYPERTENSION
     Dosage: 5-10 MG
     Route: 048
  9. PANTOLOC [Concomitant]
     Indication: GASTROOESOPHAGEAL REFLUX DISEASE
     Route: 048
  10. MYLAN GLIACAZIDE [Concomitant]
     Indication: PRODUCT USED FOR UNKNOWN INDICATION
     Dosage: 1/2 TABLET 2 IN ONE DAY
     Route: 048
  11. WARFARIN [Concomitant]
     Indication: ANTICOAGULANT THERAPY
     Route: 048
  12. RAMIPRIL [Concomitant]
     Indication: HYPERTENSION
     Dosage: 10/5MG ONCE A DAY
     Route: 048
  13. TRAVATAN [Concomitant]
     Indication: GLAUCOMA
     Route: 047
     Dates: start: 20060101
  14. METOPROLOL [Concomitant]
     Indication: PRODUCT USED FOR UNKNOWN INDICATION
     Route: 048

REACTIONS (7)
  - MUSCULOSKELETAL PAIN [None]
  - BLOOD DISORDER [None]
  - MOBILITY DECREASED [None]
  - HEART RATE INCREASED [None]
  - ATRIAL FIBRILLATION [None]
  - ROTATOR CUFF SYNDROME [None]
  - ILL-DEFINED DISORDER [None]
